FAERS Safety Report 10418858 (Version 1)
Quarter: 2014Q2

REPORT INFORMATION
  Report Type: Spontaneous
  Country: US (occurrence: None)
  Receive Date: 20140617
  Receipt Date: 20140617
  Transmission Date: 20141212
  Serious: Yes (Other)
  Sender: FDA-Public Use
  Company Number: 1252195

PATIENT
  Age: 78 Year
  Sex: Female
  Weight: 95.58 kg

DRUGS (8)
  1. ACTEMRA [Suspect]
     Indication: RHEUMATOID ARTHRITIS
     Route: 042
     Dates: start: 20101108
  2. ALBUTEROL (SALBUTAMOL SULFATE) [Concomitant]
  3. ALDACTONE (SPIRONOLACTONE) [Concomitant]
  4. FISH OIL (FISH OIL) [Concomitant]
  5. FLOVENT ROTADISK (FLUTICASONE PROPIONATE) [Concomitant]
  6. FLUOCINONIDE (FLUOCINONIDE) [Concomitant]
  7. LASIX (FUROSEMIDE) [Concomitant]
  8. LOPRESSOR HCT (HYDROCHLOROTHIAZIDE, METOPROLOL TARTRATE [Concomitant]

REACTIONS (1)
  - Thrombocytopenia [None]
